FAERS Safety Report 17172021 (Version 6)
Quarter: 2020Q1

REPORT INFORMATION
  Report Type: Report from Study
  Country: IN (occurrence: IN)
  Receive Date: 20191219
  Receipt Date: 20200318
  Transmission Date: 20200409
  Serious: Yes (Hospitalization)
  Sender: FDA-Public Use
  Company Number: NVSC2019IN069080

PATIENT
  Age: 64 Year
  Sex: Male
  Weight: 56 kg

DRUGS (16)
  1. DEXAMETHASONE. [Concomitant]
     Active Substance: DEXAMETHASONE
     Indication: PREMEDICATION
     Dosage: UNK
     Route: 065
     Dates: start: 20191129, end: 20191129
  2. CANAKINUMAB. [Suspect]
     Active Substance: CANAKINUMAB
     Indication: NON-SMALL CELL LUNG CANCER
     Dosage: CODE NOT BROKEN
     Route: 058
     Dates: start: 20191129
  3. FAMODITINE [Concomitant]
     Active Substance: FAMOTIDINE
     Indication: GENERAL PHYSICAL CONDITION
     Dosage: UNK
     Route: 065
     Dates: start: 20191129, end: 20191129
  4. IVABRAD [Concomitant]
     Indication: GENERAL PHYSICAL CONDITION
     Dosage: UNK
     Route: 065
     Dates: start: 20191212, end: 20191212
  5. COMPARATOR PEMBROLIZUMAB [Suspect]
     Active Substance: PEMBROLIZUMAB
     Indication: NON-SMALL CELL LUNG CANCER
     Dosage: 200 MG, Q3W
     Route: 042
     Dates: start: 20191129
  6. EMESET [Concomitant]
     Active Substance: ONDANSETRON HYDROCHLORIDE
     Indication: GENERAL PHYSICAL CONDITION
     Dosage: UNK
     Route: 065
     Dates: start: 20191129, end: 20191129
  7. EMESET [Concomitant]
     Active Substance: ONDANSETRON HYDROCHLORIDE
     Dosage: UNK
     Route: 065
     Dates: start: 20191211, end: 20191216
  8. AVIL [Concomitant]
     Active Substance: PHENIRAMINE
     Indication: GENERAL PHYSICAL CONDITION
     Dosage: UNK
     Route: 065
     Dates: start: 20191129, end: 20191129
  9. PANTOPRAZOL [Concomitant]
     Active Substance: PANTOPRAZOLE SODIUM
     Indication: GENERAL PHYSICAL CONDITION
     Dosage: UNK
     Route: 065
     Dates: start: 20191129, end: 20191129
  10. COMPARATOR CARBOPLATIN [Suspect]
     Active Substance: CARBOPLATIN
     Indication: NON-SMALL CELL LUNG CANCER
     Dosage: 650 MG, Q3W
     Route: 042
     Dates: start: 20191129
  11. POTKLOR [Concomitant]
     Indication: GENERAL PHYSICAL CONDITION
     Dosage: UNK
     Route: 065
     Dates: start: 20191216, end: 20191218
  12. ZINCOVIT [Concomitant]
     Indication: GENERAL PHYSICAL CONDITION
     Dosage: UNK
     Route: 065
     Dates: start: 20191130, end: 20191211
  13. EMESET [Concomitant]
     Active Substance: ONDANSETRON HYDROCHLORIDE
     Dosage: UNK
     Route: 065
     Dates: start: 20191130
  14. COMPARATOR NAB-PACLITAXEL [Suspect]
     Active Substance: PACLITAXEL
     Indication: NON-SMALL CELL LUNG CANCER
     Dosage: 150 MG, Q3W
     Route: 042
     Dates: start: 20191129
  15. ULTRACET [Concomitant]
     Active Substance: ACETAMINOPHEN\TRAMADOL HYDROCHLORIDE
     Indication: GENERAL PHYSICAL CONDITION
     Dosage: UNK
     Route: 065
     Dates: start: 20191130
  16. LOOZ [Concomitant]
     Indication: GENERAL PHYSICAL CONDITION
     Dosage: UNK
     Route: 065
     Dates: start: 20191129

REACTIONS (1)
  - Pneumonia [Not Recovered/Not Resolved]

NARRATIVE: CASE EVENT DATE: 20191211
